FAERS Safety Report 8059918-3 (Version None)
Quarter: 2012Q1

REPORT INFORMATION
  Report Type: 
  Country: None (occurrence: None)
  Receive Date: 20120120
  Receipt Date: 20120115
  Transmission Date: 20120608
  Serious: Yes (Other)
  Sender: FDA-Public Use
  Company Number: US-BAYER-2012-005647

PATIENT
  Age: 84 Year
  Sex: Male
  Weight: 73 kg

DRUGS (15)
  1. ASPIRIN [Concomitant]
  2. LAXATIVE [Concomitant]
  3. CALCIUM [Concomitant]
  4. LIPITOR [Concomitant]
  5. VITAMIN D [Concomitant]
  6. MULTI-VITAMIN [Concomitant]
  7. SYNTHROID [Concomitant]
  8. PANTOPRAZOLE [Concomitant]
  9. SYMBICORT [Concomitant]
  10. TAMSULOSIN HCL [Concomitant]
  11. MAGNESIUM HYDROXIDE TAB [Suspect]
     Dosage: UNK
     Route: 048
     Dates: start: 20120115
  12. METOPROLOL [Concomitant]
  13. VITAMIN TAB [Concomitant]
  14. PLAVIX [Concomitant]
  15. VITAMIN B-12 [Concomitant]

REACTIONS (3)
  - CONSTIPATION [None]
  - DIARRHOEA HAEMORRHAGIC [None]
  - BOWEL MOVEMENT IRREGULARITY [None]
